FAERS Safety Report 18548532 (Version 1)
Quarter: 2020Q4

REPORT INFORMATION
  Report Type: Spontaneous
  Country: GB (occurrence: GB)
  Receive Date: 20201126
  Receipt Date: 20201126
  Transmission Date: 20210114
  Serious: Yes (Hospitalization, Other)
  Sender: FDA-Public Use
  Company Number: GB-AUROBINDO-08-AUR-04257

PATIENT
  Age: 20 Year
  Sex: Male

DRUGS (1)
  1. PARACETAMOL TABLET [Suspect]
     Active Substance: ACETAMINOPHEN
     Indication: TOOTHACHE
     Dosage: 60 DOSAGE FORM, LAST THREE DAYS
     Route: 048

REACTIONS (9)
  - Abdominal tenderness [Unknown]
  - Vomiting [Recovered/Resolved]
  - Accidental overdose [Recovered/Resolved]
  - White blood cell count increased [Recovered/Resolved]
  - Abdominal pain [Recovered/Resolved]
  - Emotional distress [Unknown]
  - Hepatic failure [Recovered/Resolved]
  - Abdominal rigidity [Recovered/Resolved]
  - Blood bilirubin increased [Unknown]
